FAERS Safety Report 6754727-7 (Version None)
Quarter: 2010Q2

REPORT INFORMATION
  Report Type: 
  Country: None (occurrence: None)
  Receive Date: 20100603
  Receipt Date: 20100526
  Transmission Date: 20101027
  Serious: Yes (Other)
  Sender: FDA-Public Use
  Company Number: US-ABBOTT-10P-163-0647863-00

PATIENT
  Sex: Female

DRUGS (7)
  1. HUMIRA [Suspect]
     Indication: PSORIATIC ARTHROPATHY
     Route: 058
     Dates: start: 20090801, end: 20091201
  2. HUMIRA [Suspect]
     Indication: PSORIASIS
  3. TEKTURNA [Concomitant]
     Indication: HYPERTENSION
     Dates: end: 20100101
  4. HYDROCHLOROTHIAZIDE [Concomitant]
     Indication: HYPERTENSION
     Dates: start: 20100101
  5. LABETALOL HCL [Concomitant]
     Indication: HYPERTENSION
     Dates: start: 20100101
  6. CLONIDINE [Concomitant]
     Indication: HYPERTENSION
  7. AVALIDE [Concomitant]
     Indication: HYPERTENSION
     Dosage: 300/25MG

REACTIONS (9)
  - BACK PAIN [None]
  - CHEST PAIN [None]
  - CHOLELITHIASIS [None]
  - CORONARY ARTERY OCCLUSION [None]
  - FATIGUE [None]
  - MUSCULOSKELETAL PAIN [None]
  - NECK PAIN [None]
  - PAIN IN JAW [None]
  - ULTRASOUND KIDNEY ABNORMAL [None]
